FAERS Safety Report 9860575 (Version 2)
Quarter: 2014Q2

REPORT INFORMATION
  Report Type: Spontaneous
  Country: PL (occurrence: PL)
  Receive Date: 20140202
  Receipt Date: 20140422
  Transmission Date: 20141212
  Serious: Yes (Life-Threatening, Hospitalization)
  Sender: FDA-Public Use
  Company Number: PL-CELGENEUS-129-21660-14013604

PATIENT
  Age: 63 Year
  Sex: Female

DRUGS (3)
  1. ABRAXANE [Suspect]
     Indication: OVARIAN CANCER
     Dosage: 289.77 MILLIGRAM
     Route: 041
     Dates: start: 20131203, end: 20131203
  2. ABRAXANE [Suspect]
     Indication: OFF LABEL USE
     Route: 041
     Dates: start: 20140102, end: 20140102
  3. CARBOPLATIN [Suspect]
     Indication: PRODUCT USED FOR UNKNOWN INDICATION
     Route: 065

REACTIONS (4)
  - Anaphylactic reaction [Recovered/Resolved]
  - Dyspnoea [Recovered/Resolved]
  - Erythema [Recovered/Resolved]
  - Blood pressure increased [Recovered/Resolved]
